FAERS Safety Report 5096391-1 (Version None)
Quarter: 2006Q3

REPORT INFORMATION
  Report Type: 
  Country: None (occurrence: None)
  Receive Date: 20060831
  Receipt Date: 20060821
  Transmission Date: 20061208
  Serious: Yes (Hospitalization, Other)
  Sender: FDA-Public Use
  Company Number: 2006-01360

PATIENT
  Age: 69 Year
  Sex: Male
  Weight: 88.3 kg

DRUGS (12)
  1. VELCADE [Suspect]
     Indication: RENAL CELL CARCINOMA STAGE UNSPECIFIED
     Dosage: 1.3 MG/M2, IV BOLUS
     Route: 040
     Dates: start: 20060523, end: 20060526
  2. BAY 43-9006 TOSYLATE() [Suspect]
     Indication: RENAL CELL CARCINOMA STAGE UNSPECIFIED
     Dosage: 200.00 MG, ORAL
     Route: 048
     Dates: start: 20060523, end: 20060529
  3. ADVAIR DISKUS 100/50 [Concomitant]
  4. AMITRIPTYLINE HCL [Concomitant]
  5. ASPIRIN [Concomitant]
  6. LANTUS [Concomitant]
  7. LISINOPRIL [Concomitant]
  8. NITROSTAT [Concomitant]
  9. NOVOLIN N [Concomitant]
  10. SIMVASTATIN [Concomitant]
  11. TRICOR [Concomitant]
  12. ISOSORBIDE MONONITRATE [Concomitant]

REACTIONS (1)
  - PANCREATITIS [None]
